FAERS Safety Report 10298752 (Version 2)
Quarter: 2015Q1

REPORT INFORMATION
  Report Type: Spontaneous
  Country: IT (occurrence: IT)
  Receive Date: 20140711
  Receipt Date: 20150108
  Transmission Date: 20150720
  Serious: Yes (Hospitalization)
  Sender: FDA-Public Use
  Company Number: IT-PFIZER INC-2014189324

PATIENT
  Age: 43 Year
  Sex: Female

DRUGS (7)
  1. SERTRALINE ACTAVIS [Suspect]
     Active Substance: SERTRALINE HYDROCHLORIDE
     Dosage: 10 DF, TOTAL
     Route: 048
     Dates: start: 20140701, end: 20140701
  2. FOLINA [Suspect]
     Active Substance: FOLIC ACID
     Dosage: 20 DF, TOTAL
     Route: 048
     Dates: start: 20140701, end: 20140701
  3. RISPERDAL [Suspect]
     Active Substance: RISPERIDONE
     Dosage: 30 DF, TOTAL
     Route: 048
     Dates: start: 20140701, end: 20140701
  4. EUTIROX [Concomitant]
     Active Substance: LEVOTHYROXINE SODIUM
  5. DEPAKENE [Suspect]
     Active Substance: VALPROIC ACID
     Dosage: 12 DF (EACH DF 300 MG), TOTAL
     Route: 048
     Dates: start: 20140701, end: 20140701
  6. LYRICA [Suspect]
     Active Substance: PREGABALIN
     Dosage: 90 DF, TOTAL
     Route: 048
     Dates: start: 20140701, end: 20140701
  7. DEPAKENE [Suspect]
     Active Substance: VALPROIC ACID
     Dosage: 10 DF (EACH DF 500 MG), TOTAL
     Route: 048
     Dates: start: 20140701, end: 20140701

REACTIONS (5)
  - Somnolence [Recovering/Resolving]
  - Bradyphrenia [Recovering/Resolving]
  - Asthenia [Recovering/Resolving]
  - Drug abuse [Recovering/Resolving]
  - Bradykinesia [Recovering/Resolving]

NARRATIVE: CASE EVENT DATE: 20140701
